FAERS Safety Report 19152419 (Version 1)
Quarter: 2021Q2

REPORT INFORMATION
  Report Type: Spontaneous
  Country: US (occurrence: US)
  Receive Date: 20210416
  Receipt Date: 20210416
  Transmission Date: 20210717
  Serious: Yes (Death)
  Sender: FDA-Public Use
  Company Number: None

PATIENT
  Age: 78 Year
  Sex: Male
  Weight: 74.39 kg

DRUGS (8)
  1. TAMSULOSIN 0.4MG [Concomitant]
     Active Substance: TAMSULOSIN
  2. VENCLEXTA 100MG [Concomitant]
  3. MEGESTROL 40MG [Concomitant]
  4. DECITABINE 50MG [Concomitant]
  5. SERTRALINE [Concomitant]
     Active Substance: SERTRALINE HYDROCHLORIDE
  6. ZARXIO 480MCG [Concomitant]
  7. CYTARABINE. [Suspect]
     Active Substance: CYTARABINE
     Indication: ACUTE MYELOID LEUKAEMIA
     Dosage: ?          OTHER FREQUENCY:QD 10DAYS/MONTH;?
     Route: 058
     Dates: start: 20200829, end: 20210405
  8. FINASTERIDE 5MG [Concomitant]
     Active Substance: FINASTERIDE

REACTIONS (1)
  - Death [None]

NARRATIVE: CASE EVENT DATE: 20210405
